FAERS Safety Report 5966261-2 (Version None)
Quarter: 2008Q4

REPORT INFORMATION
  Report Type: 
  Country: None (occurrence: None)
  Receive Date: 20081125
  Receipt Date: 20081119
  Transmission Date: 20090506
  Serious: Yes (Other)
  Sender: FDA-Public Use
  Company Number: GB-TEVA-180858ISR

PATIENT
  Age: 12 Month

DRUGS (2)
  1. DIAZEPAM [Suspect]
  2. METHADONE HCL [Suspect]

REACTIONS (3)
  - NYSTAGMUS [None]
  - POSTURE ABNORMAL [None]
  - STRABISMUS [None]
